FAERS Safety Report 7808385-0 (Version None)
Quarter: 2011Q4

REPORT INFORMATION
  Report Type: 
  Country: None (occurrence: None)
  Receive Date: 20111011
  Receipt Date: 20111011
  Transmission Date: 20120403
  Serious: Yes (Hospitalization)
  Sender: FDA-Public Use
  Company Number: None

PATIENT
  Age: 85 Year
  Sex: Female
  Weight: 97.2 kg

DRUGS (6)
  1. ACYCLOVIR [Concomitant]
  2. DECITABINE [Suspect]
     Indication: MYELODYSPLASTIC SYNDROME
     Dosage: 0.1MG/KG 1X WK, SQ INJ GIVEN ON 9/27, 10/4
     Route: 058
  3. TYLENOL-500 [Concomitant]
  4. AMLODIPINE [Concomitant]
  5. LISINOPRIL [Concomitant]
  6. DOXYCYCLINE [Concomitant]

REACTIONS (3)
  - FEBRILE NEUTROPENIA [None]
  - NASOPHARYNGITIS [None]
  - RASH [None]
